FAERS Safety Report 5376117-4 (Version None)
Quarter: 2007Q3

REPORT INFORMATION
  Report Type: 
  Country: None (occurrence: None)
  Receive Date: 20070702
  Receipt Date: 20070628
  Transmission Date: 20080115
  Serious: Yes (Death, Hospitalization)
  Sender: FDA-Public Use
  Company Number: B0475641A

PATIENT
  Sex: Female

DRUGS (2)
  1. ROSIGLITAZONE MALEATE [Suspect]
     Route: 048
     Dates: start: 20000925
  2. SIMVASTATIN [Concomitant]

REACTIONS (17)
  - ASCITES [None]
  - CARDIAC FAILURE [None]
  - CARDIAC FAILURE CONGESTIVE [None]
  - CATARACT OPERATION [None]
  - DEATH [None]
  - DIABETIC RETINOPATHY [None]
  - EYE DISORDER [None]
  - EYE HAEMORRHAGE [None]
  - EYE OEDEMA [None]
  - HYPERTENSION [None]
  - LIPIDS INCREASED [None]
  - MYOCARDIAL INFARCTION [None]
  - NEUROPATHY [None]
  - OEDEMA [None]
  - OEDEMA PERIPHERAL [None]
  - STAPHYLOCOCCAL INFECTION [None]
  - ULCER [None]
